FAERS Safety Report 4867449-4 (Version None)
Quarter: 2005Q4

REPORT INFORMATION
  Report Type: 
  Country: None (occurrence: None)
  Receive Date: 20051222
  Receipt Date: 20051209
  Transmission Date: 20060501
  Serious: Yes (Hospitalization)
  Sender: FDA-Public Use
  Company Number: US-2005-026473

PATIENT
  Age: 82 Year
  Sex: Male

DRUGS (3)
  1. LEUKINE [Suspect]
     Indication: WHITE BLOOD CELL COUNT DECREASED
     Dates: start: 20051207, end: 20051207
  2. COUMADIN [Concomitant]
  3. AZACITIDINE (VIDAZA) (AZACITIDINE) [Concomitant]

REACTIONS (3)
  - HAEMATOCRIT DECREASED [None]
  - HAEMOPTYSIS [None]
  - PULMONARY ALVEOLAR HAEMORRHAGE [None]
